FAERS Safety Report 14356326 (Version 1)
Quarter: 2018Q1

REPORT INFORMATION
  Report Type: Spontaneous
  Country: US (occurrence: US)
  Receive Date: 20180105
  Receipt Date: 20180105
  Transmission Date: 20180509
  Serious: No
  Sender: FDA-Public Use
  Company Number: US-ALLERGAN-1734430US

PATIENT
  Sex: Female

DRUGS (3)
  1. KYBELLA [Suspect]
     Active Substance: DEOXYCHOLIC ACID
     Dosage: 2 VIALS, SINGLE
     Route: 058
  2. KYBELLA [Suspect]
     Active Substance: DEOXYCHOLIC ACID
     Dosage: 2 VIALS, SINGLE
     Route: 058
     Dates: end: 201705
  3. KYBELLA [Suspect]
     Active Substance: DEOXYCHOLIC ACID
     Indication: FAT TISSUE DECREASED
     Dosage: 2 VIALS, SINGLE
     Route: 058
     Dates: start: 201701

REACTIONS (1)
  - Drug ineffective [Unknown]
